FAERS Safety Report 6915341-3 (Version None)
Quarter: 2010Q3

REPORT INFORMATION
  Report Type: 
  Country: None (occurrence: None)
  Receive Date: 20100809
  Receipt Date: 20100114
  Transmission Date: 20110219
  Serious: No
  Sender: FDA-Public Use
  Company Number: US-ABBOTT-09P-163-0616680-00

PATIENT
  Sex: Male

DRUGS (10)
  1. DEPAKOTE ER [Suspect]
     Indication: BIPOLAR DISORDER
     Route: 048
     Dates: start: 20050101, end: 20070701
  2. DEPAKOTE ER [Suspect]
  3. DEPAKOTE ER [Suspect]
     Route: 048
  4. DEPAKOTE ER [Suspect]
     Route: 048
  5. LAMICTAL [Concomitant]
     Indication: BIPOLAR DISORDER
     Route: 048
  6. FELDENE [Concomitant]
     Indication: OSTEOARTHRITIS
     Route: 048
  7. KLONOPIN [Concomitant]
     Indication: ANXIETY DISORDER
     Route: 048
  8. MULTI-VITAMIN [Concomitant]
     Indication: VITAMIN SUPPLEMENTATION
     Route: 048
  9. VITAMIN B COMPLEX CAP [Concomitant]
     Indication: VITAMIN SUPPLEMENTATION
     Route: 048
  10. LOVAZA [Concomitant]
     Indication: MEDICAL DIET
     Route: 048

REACTIONS (7)
  - BLOOD THYROID STIMULATING HORMONE INCREASED [None]
  - CELLULITIS [None]
  - DELUSIONAL DISORDER, UNSPECIFIED TYPE [None]
  - DEPRESSION [None]
  - HOSTILITY [None]
  - MANIA [None]
  - NEUROPATHY PERIPHERAL [None]
